FAERS Safety Report 21692625 (Version 5)
Quarter: 2023Q1

REPORT INFORMATION
  Report Type: Spontaneous
  Country: JP (occurrence: JP)
  Receive Date: 20221207
  Receipt Date: 20230329
  Transmission Date: 20230417
  Serious: Yes (Other)
  Sender: FDA-Public Use
  Company Number: JP-ASTELLAS-2022JP015547

PATIENT
  Age: 70 Year
  Sex: Male
  Weight: 56.4 kg

DRUGS (7)
  1. PADCEV [Suspect]
     Active Substance: ENFORTUMAB VEDOTIN-EJFV
     Indication: Ureteric cancer
     Dosage: 1.25 MG/KG, ONCE WEEKLY, 3 ADMINISTRATIONS AND 1 INTERRUPTION
     Route: 041
     Dates: start: 20221007, end: 20221128
  2. PADCEV [Suspect]
     Active Substance: ENFORTUMAB VEDOTIN-EJFV
     Dosage: 1 MG/KG, ONCE WEEKLY, 3 ADMINISTRATIONS AND 1 INTERRUPTION
     Route: 041
     Dates: start: 20230106, end: 20230120
  3. KEYTRUDA [Concomitant]
     Active Substance: PEMBROLIZUMAB
     Indication: Product used for unknown indication
     Dosage: UNK UNK, UNKNOWN FREQ.
     Route: 065
  4. LYRICA [Concomitant]
     Active Substance: PREGABALIN
     Indication: Hypoaesthesia
     Dosage: UNK UNK, UNKNOWN FREQ.
     Route: 048
  5. BETAMETHASONE VALERATE [Concomitant]
     Active Substance: BETAMETHASONE VALERATE
     Indication: Erythema
     Dosage: UNK UNK, UNKNOWN FREQ.
     Route: 050
     Dates: start: 20221017, end: 20221206
  6. CLOBETASOL PROPIONATE [Concomitant]
     Active Substance: CLOBETASOL PROPIONATE
     Indication: Erythema
     Dosage: UNK UNK, UNKNOWN FREQ.
     Route: 050
     Dates: start: 20221017, end: 20221206
  7. POLAPREZINC [Concomitant]
     Active Substance: POLAPREZINC
     Indication: Taste disorder
     Route: 065
     Dates: start: 20221111

REACTIONS (3)
  - Pulmonary toxicity [Recovering/Resolving]
  - Erythema [Recovering/Resolving]
  - Taste disorder [Not Recovered/Not Resolved]

NARRATIVE: CASE EVENT DATE: 20221017
